FAERS Safety Report 25751057 (Version 4)
Quarter: 2025Q4

REPORT INFORMATION
  Report Type: Report from Study
  Country: US (occurrence: None)
  Receive Date: 20250902
  Receipt Date: 20251127
  Transmission Date: 20260117
  Serious: Yes (Hospitalization, Other)
  Sender: UCB
  Company Number: US-UCBSA-2025053208

PATIENT
  Age: 7 Year
  Weight: 23.4 kg

DRUGS (20)
  1. FENFLURAMINE [Suspect]
     Active Substance: FENFLURAMINE
     Indication: Severe myoclonic epilepsy of infancy
     Dosage: 4 MILLILITER, 2X/DAY (BID)
  2. FENFLURAMINE [Suspect]
     Active Substance: FENFLURAMINE
     Dosage: 4 MILLILITER, 2X/DAY (BID)
  3. FENFLURAMINE [Suspect]
     Active Substance: FENFLURAMINE
     Dosage: 3.5 MILLILITER, 2X/DAY (BID)
  4. FENFLURAMINE [Suspect]
     Active Substance: FENFLURAMINE
     Dosage: 17.6 MILLIGRAM PER DAY
  5. FENFLURAMINE [Suspect]
     Active Substance: FENFLURAMINE
     Dosage: 4 MILLILITER, 2X/DAY (BID)
  6. BRIVIACT [Concomitant]
     Active Substance: BRIVARACETAM
     Indication: Product used for unknown indication
     Dosage: 10 MLS (100 MG) BY MOUTH EVERY MORNING,
  7. VALTOCO [Concomitant]
     Active Substance: DIAZEPAM
     Indication: Product used for unknown indication
     Dosage: 10 MILLIGRAM
  8. KLONOPIN [Concomitant]
     Active Substance: CLONAZEPAM
     Indication: Seizure cluster
     Dosage: 0.25 MILLIGRAM
  9. SYMBICORT [Concomitant]
     Active Substance: BUDESONIDE\FORMOTEROL FUMARATE DIHYDRATE
     Dosage: INHALE 2 PUFFS THE LUNGS 2 TIMES MCG/ACTUATION INHALER DAILY FOR 90 DAYS
  10. ORAPRED [Concomitant]
     Active Substance: PREDNISOLONE SODIUM PHOSPHATE
     Indication: Product used for unknown indication
     Dosage: 15 MLS (45 75 ML 0 MG/10 ML SOLUTION MG) BY MOUTH DAILY FOR 5 DAYS. (PATIENT NOT TAKING: REPORTED ON 9/8/2025)
  11. CATAPRES [Concomitant]
     Active Substance: CLONIDINE HYDROCHLORIDE
     Indication: Insomnia
     Dosage: 9 ML -AND REPEAT 2 ML IF NEEDED, ALTHOUGH HAS NOT BEEN GETTING.
  12. TENEX [Concomitant]
     Active Substance: GUANFACINE HYDROCHLORIDE
     Indication: Product used for unknown indication
     Dosage: 1 TABLET BY PER G TUBE ROUTE AT BEDTIME
  13. ONFI [Concomitant]
     Active Substance: CLOBAZAM
     Indication: Product used for unknown indication
     Dosage: 2.5 MLS EVERY MORNING AND 2 MLS EVEY EVENING AND 4 ML AT BEDTIME
  14. EPIDIOLEX [Concomitant]
     Active Substance: CANNABIDIOL
     Indication: Product used for unknown indication
     Dosage: 2.5 MILLILITER PER G TUBE ROUTE EVERY 12 HOURS
  15. TOPIRAMATE [Concomitant]
     Active Substance: TOPIRAMATE
     Indication: Product used for unknown indication
     Dosage: 2.5 ML BY PEG ROUTE ONCE DAILY AND 5 ML AT BEDTIME
  16. FLONASE [Concomitant]
     Active Substance: FLUTICASONE PROPIONATE
     Indication: Product used for unknown indication
     Dosage: 1 SPRAY BY NASAL ROUTE ONCE DAILY
  17. BOUDREAUXS NOS [Concomitant]
     Active Substance: UNSPECIFIED INGREDIENT
     Indication: Product used for unknown indication
     Dosage: PPLY 20 EACH  TOPICALLY AS NEEDED,
  18. MYCOSTATIN [Concomitant]
     Active Substance: NYSTATIN
     Indication: Product used for unknown indication
     Dosage: APPLY TO DIAPER AREA WITH BUTTPASTE WITH EACH DIAPER CHANGE
  19. OCEAN SALINE NASAL SPRAY [Concomitant]
     Active Substance: SODIUM CHLORIDE
     Indication: Respiratory tract congestion
     Dosage: SPRAY BY NASAL  ROUTE AS NEEDED FOR CONGESTION
  20. VITAMIN C [Concomitant]
     Active Substance: ASCORBIC ACID
     Indication: Product used for unknown indication
     Dosage: TAKE 250 MG BY  MOUTH DAILY.

REACTIONS (9)
  - Influenza [Recovered/Resolved]
  - Seizure [Recovering/Resolving]
  - Petit mal epilepsy [Recovering/Resolving]
  - Partial seizures [Not Recovered/Not Resolved]
  - Seizure cluster [Unknown]
  - Pneumonia [Recovered/Resolved]
  - Restlessness [Unknown]
  - Loss of personal independence in daily activities [Unknown]
  - Drug ineffective [Unknown]
